FAERS Safety Report 18086929 (Version 2)
Quarter: 2020Q4

REPORT INFORMATION
  Report Type: Spontaneous
  Country: GR (occurrence: GR)
  Receive Date: 20200729
  Receipt Date: 20201008
  Transmission Date: 20210113
  Serious: Yes (Other)
  Sender: FDA-Public Use
  Company Number: GR-STRIDES ARCOLAB LIMITED-2020SP008467

PATIENT
  Age: 55 Year
  Sex: Female

DRUGS (2)
  1. VALERIAN [VALERIANA OFFICINALIS] [Concomitant]
     Active Substance: VALERIAN
     Indication: INSOMNIA
     Dosage: UNK
     Route: 065
  2. ZOLPIDEM [Suspect]
     Active Substance: ZOLPIDEM TARTRATE
     Indication: INSOMNIA
     Dosage: 10 MILLIGRAM, AT BED TIME
     Route: 065

REACTIONS (6)
  - Genital swelling [Recovered/Resolved]
  - Female reproductive tract disorder [Recovered/Resolved]
  - Persistent genital arousal disorder [Recovered/Resolved]
  - Tension [Recovered/Resolved]
  - Paraesthesia [Recovered/Resolved]
  - Anxiety [Recovered/Resolved]
